FAERS Safety Report 20446404 (Version 1)
Quarter: 2022Q1

REPORT INFORMATION
  Report Type: Spontaneous
  Country: JP (occurrence: JP)
  Receive Date: 20220208
  Receipt Date: 20220208
  Transmission Date: 20220423
  Serious: Yes (Other)
  Sender: FDA-Public Use
  Company Number: JP-ELI_LILLY_AND_COMPANY-JP202012001781

PATIENT
  Age: 6 Year
  Sex: Female
  Weight: 13.3 kg

DRUGS (17)
  1. ADCIRCA [Suspect]
     Active Substance: TADALAFIL
     Indication: Pulmonary arterial hypertension
     Dosage: 24 MG, DAILY
     Route: 065
     Dates: end: 20200306
  2. ADCIRCA [Suspect]
     Active Substance: TADALAFIL
     Dosage: 16 MG, DAILY
     Route: 065
     Dates: start: 20200307, end: 20200402
  3. ADCIRCA [Suspect]
     Active Substance: TADALAFIL
     Dosage: 8 MG, DAILY
     Route: 065
     Dates: start: 20200403, end: 20200515
  4. ADCIRCA [Suspect]
     Active Substance: TADALAFIL
     Dosage: 4 MG, DAILY
     Route: 065
     Dates: start: 20200516, end: 20200626
  5. UPTRAVI [Suspect]
     Active Substance: SELEXIPAG
     Indication: Pulmonary arterial hypertension
     Dosage: 0.05 MG, BID
     Route: 048
     Dates: start: 20171215, end: 20180104
  6. UPTRAVI [Suspect]
     Active Substance: SELEXIPAG
     Dosage: 0.075 MG, BID
     Route: 048
     Dates: start: 20180105, end: 20180301
  7. UPTRAVI [Suspect]
     Active Substance: SELEXIPAG
     Dosage: 0.15 MG, BID
     Route: 048
     Dates: start: 20180302, end: 20180329
  8. UPTRAVI [Suspect]
     Active Substance: SELEXIPAG
     Dosage: 0.2 MG, BID
     Route: 048
     Dates: start: 20180330, end: 20180727
  9. UPTRAVI [Suspect]
     Active Substance: SELEXIPAG
     Dosage: 0.25 MG, BID
     Route: 048
     Dates: start: 20180728, end: 20180824
  10. UPTRAVI [Suspect]
     Active Substance: SELEXIPAG
     Dosage: 0.3 MG, BID
     Route: 048
     Dates: start: 20180825, end: 20180921
  11. UPTRAVI [Suspect]
     Active Substance: SELEXIPAG
     Dosage: 0.35 MG, BID
     Route: 048
     Dates: start: 20180922, end: 20181214
  12. UPTRAVI [Suspect]
     Active Substance: SELEXIPAG
     Dosage: 0.4 MG, BID
     Route: 048
     Dates: start: 20181215, end: 20190927
  13. UPTRAVI [Suspect]
     Active Substance: SELEXIPAG
     Dosage: 0.5 MG, BID
     Route: 048
     Dates: start: 20190928, end: 20191220
  14. UPTRAVI [Suspect]
     Active Substance: SELEXIPAG
     Dosage: 0.6 MG, BID
     Route: 048
     Dates: start: 20191221, end: 20200131
  15. UPTRAVI [Suspect]
     Active Substance: SELEXIPAG
     Dosage: 0.65 MG, BID
     Route: 048
     Dates: start: 20200201
  16. OPSUMIT [Suspect]
     Active Substance: MACITENTAN
     Indication: Pulmonary arterial hypertension
     Dosage: 2.5 MG, DAILY
     Route: 048
  17. MAGNESIUM OXIDE [Concomitant]
     Active Substance: MAGNESIUM OXIDE
     Indication: Constipation
     Dosage: 0.5 G, DAILY
     Route: 065
     Dates: end: 20180510

REACTIONS (5)
  - Pulmonary arterial hypertension [Unknown]
  - Anaemia [Recovered/Resolved]
  - Anaemia [Recovered/Resolved]
  - Anaemia [Recovered/Resolved]
  - Off label use [Unknown]

NARRATIVE: CASE EVENT DATE: 20180105
